FAERS Safety Report 8765307 (Version 1)
Quarter: 2012Q4

REPORT INFORMATION
  Report Type: 
  Country: US (occurrence: US)
  Receive Date: 20120831
  Receipt Date: 20120831
  Transmission Date: 20130627
  Serious: Yes (Life-Threatening, Hospitalization, Other)
  Sender: FDA-Public Use
  Company Number: US-BAYER-2012-088931

PATIENT
  Age: 42 Year
  Sex: Female
  Weight: 63.49 kg

DRUGS (3)
  1. YASMIN [Suspect]
     Indication: CONTRACEPTION
     Dosage: UNK
     Dates: start: 2006, end: 2011
  2. OCELLA [Suspect]
     Indication: CONTRACEPTION
     Dosage: UNK
     Dates: start: 2006, end: 2011
  3. ZOLPIDEM [Concomitant]
     Dosage: 10 mg, UNK
     Dates: start: 20110225

REACTIONS (16)
  - Pelvic venous thrombosis [None]
  - Convulsion [None]
  - Anxiety [None]
  - Memory impairment [None]
  - Anger [None]
  - Confusional state [None]
  - Respiratory arrest [None]
  - Back pain [None]
  - Dyspnoea [None]
  - Palpitations [None]
  - Facial bones fracture [None]
  - Chest pain [None]
  - Thrombosis [None]
  - Pulmonary embolism [None]
  - Hypertension [None]
  - Syncope [None]
